FAERS Safety Report 12409503 (Version 1)
Quarter: 2016Q2

REPORT INFORMATION
  Report Type: Spontaneous
  Country: US (occurrence: US)
  Receive Date: 20160526
  Receipt Date: 20160526
  Transmission Date: 20160815
  Serious: No
  Sender: FDA-Public Use
  Company Number: US-ELI_LILLY_AND_COMPANY-US201605007224

PATIENT
  Age: 36 Year
  Sex: Female

DRUGS (3)
  1. HUMALOG [Suspect]
     Active Substance: INSULIN LISPRO
     Indication: TYPE 1 DIABETES MELLITUS
     Dosage: ON SLIDING SCALE WHENEVER SHE EATS.
     Route: 065
     Dates: start: 2015
  2. LEVEMIR [Concomitant]
     Active Substance: INSULIN DETEMIR
  3. HUMALOG [Suspect]
     Active Substance: INSULIN LISPRO
     Dosage: ON SLIDING SCALE WHENEVER SHE EATS.
     Route: 065

REACTIONS (4)
  - Blood glucose increased [Unknown]
  - Maternal exposure during pregnancy [Recovered/Resolved]
  - Blood glucose increased [Unknown]
  - Exposure during breast feeding [Unknown]

NARRATIVE: CASE EVENT DATE: 20160518
